FAERS Safety Report 9795497 (Version 1)
Quarter: 2014Q1

REPORT INFORMATION
  Report Type: Spontaneous
  Country: FR (occurrence: FR)
  Receive Date: 20140103
  Receipt Date: 20140103
  Transmission Date: 20141002
  Serious: No
  Sender: FDA-Public Use
  Company Number: FR-JNJFOC-20131217844

PATIENT
  Age: 67 Year
  Sex: Male

DRUGS (4)
  1. DUROGESIC [Suspect]
     Indication: POLYARTHRITIS
     Route: 062
  2. DUROGESIC [Suspect]
     Indication: POLYARTHRITIS
     Route: 062
  3. DAFALGAN [Suspect]
     Indication: POLYARTHRITIS
     Route: 065
  4. CYMBALTA [Suspect]
     Indication: DEPRESSION
     Route: 065

REACTIONS (5)
  - Insomnia [Unknown]
  - Weight decreased [Unknown]
  - Drug prescribing error [Unknown]
  - Decreased appetite [Unknown]
  - Wrong technique in drug usage process [Unknown]
